FAERS Safety Report 8464321-8 (Version None)
Quarter: 2012Q2

REPORT INFORMATION
  Report Type: 
  Country: None (occurrence: None)
  Receive Date: 20120625
  Receipt Date: 20120612
  Transmission Date: 20120825
  Serious: Yes (Other)
  Sender: FDA-Public Use
  Company Number: GB-MYLANLABS-2012S1012027

PATIENT
  Sex: Male

DRUGS (8)
  1. PROCHLORPERAZINE [Suspect]
     Indication: VERTIGO
     Dates: start: 20070101
  2. BACTROBAN [Suspect]
     Indication: SKIN ULCER
     Dates: start: 20100310, end: 20100317
  3. BETAMETHASONE [Suspect]
     Indication: PRODUCT USED FOR UNKNOWN INDICATION
     Dates: start: 20091230, end: 20100310
  4. PHENERGAN [Suspect]
     Indication: PRODUCT USED FOR UNKNOWN INDICATION
  5. LIPITOR [Suspect]
     Indication: PRODUCT USED FOR UNKNOWN INDICATION
  6. OMEPRAZOLE [Suspect]
     Indication: PRODUCT USED FOR UNKNOWN INDICATION
  7. BETNOVATE [Suspect]
     Indication: PRURITUS
     Dates: start: 20070101
  8. PROCHLORPERAZINE [Suspect]
     Indication: VERTIGO

REACTIONS (19)
  - CEREBROVASCULAR ACCIDENT [None]
  - HYPERSENSITIVITY [None]
  - DERMATITIS ATOPIC [None]
  - CONSTIPATION [None]
  - PUSTULAR PSORIASIS [None]
  - SWELLING [None]
  - PRURITUS [None]
  - DRUG INEFFECTIVE [None]
  - DRUG INTERACTION [None]
  - ULCER [None]
  - PSYCHIATRIC SYMPTOM [None]
  - INSOMNIA [None]
  - BLOOD CHOLESTEROL INCREASED [None]
  - INFECTION [None]
  - RASH PAPULAR [None]
  - CONDITION AGGRAVATED [None]
  - ECZEMA [None]
  - EOSINOPHILIA [None]
  - RASH PRURITIC [None]
